FAERS Safety Report 25948720 (Version 1)
Quarter: 2025Q4

REPORT INFORMATION
  Report Type: Spontaneous
  Country: US (occurrence: None)
  Receive Date: 20251021
  Receipt Date: 20251021
  Transmission Date: 20260118
  Serious: Yes (unspecified)
  Sender: FDA-CTU
  Company Number: None

PATIENT
  Age: 32 Year
  Sex: Female
  Weight: 74.25 kg

DRUGS (1)
  1. ZYRTEC ALLERGY [Suspect]
     Active Substance: CETIRIZINE HYDROCHLORIDE
     Indication: Seasonal allergy

REACTIONS (5)
  - Withdrawal syndrome [None]
  - Treatment failure [None]
  - Pruritus [None]
  - Urticaria [None]
  - Insomnia [None]

NARRATIVE: CASE EVENT DATE: 20160101
